FAERS Safety Report 10749918 (Version 5)
Quarter: 2016Q2

REPORT INFORMATION
  Report Type: Spontaneous
  Country: BR (occurrence: BR)
  Receive Date: 20150129
  Receipt Date: 20160513
  Transmission Date: 20160815
  Serious: Yes (Other)
  Sender: FDA-Public Use
  Company Number: BR-LUNDBECK-DKLU1108104

PATIENT
  Age: 32 Year
  Sex: Male

DRUGS (11)
  1. FRISIUM [Suspect]
     Active Substance: CLOBAZAM
     Indication: EPILEPSY
     Route: 048
     Dates: end: 20150117
  2. FRISIUM [Suspect]
     Active Substance: CLOBAZAM
     Route: 048
     Dates: start: 20150508
  3. FRISIUM [Suspect]
     Active Substance: CLOBAZAM
     Route: 048
     Dates: start: 2015
  4. PARACETAMOL [Concomitant]
     Active Substance: ACETAMINOPHEN
     Indication: PRODUCT USED FOR UNKNOWN INDICATION
     Route: 065
     Dates: start: 20150115, end: 20150115
  5. FRISIUM [Suspect]
     Active Substance: CLOBAZAM
     Route: 048
  6. TOPIRAMATE. [Concomitant]
     Active Substance: TOPIRAMATE
     Route: 048
  7. FLUOCORTOLONE [Concomitant]
     Active Substance: FLUOCORTOLONE
     Indication: PRODUCT USED FOR UNKNOWN INDICATION
     Route: 065
  8. CARBAMAZEPINE. [Concomitant]
     Active Substance: CARBAMAZEPINE
     Indication: PRODUCT USED FOR UNKNOWN INDICATION
     Route: 065
     Dates: start: 2008
  9. TOPIRAMATE. [Concomitant]
     Active Substance: TOPIRAMATE
     Indication: EPILEPSY
     Route: 048
     Dates: start: 2008
  10. FRISIUM [Suspect]
     Active Substance: CLOBAZAM
     Route: 048
     Dates: start: 20150119, end: 20150119
  11. GARDENAL [Suspect]
     Active Substance: PHENOBARBITAL
     Indication: EPILEPSY
     Route: 051
     Dates: start: 20150118, end: 20150118

REACTIONS (9)
  - Tremor [Unknown]
  - Drug ineffective [Unknown]
  - Decreased appetite [Unknown]
  - Nervousness [Unknown]
  - Confusional state [Recovered/Resolved]
  - Wrong technique in product usage process [Unknown]
  - Social avoidant behaviour [Recovered/Resolved]
  - Epilepsy [Recovered/Resolved]
  - Breath odour [Unknown]

NARRATIVE: CASE EVENT DATE: 20150119
